FAERS Safety Report 7812716-5 (Version None)
Quarter: 2011Q4

REPORT INFORMATION
  Report Type: 
  Country: None (occurrence: None)
  Receive Date: 20111013
  Receipt Date: 20111003
  Transmission Date: 20120403
  Serious: Yes (Life-Threatening, Hospitalization, Other)
  Sender: FDA-Public Use
  Company Number: US-ACTELION-A-NJ2011-53834

PATIENT

DRUGS (2)
  1. TRACLEER [Suspect]
     Indication: PULMONARY ARTERIAL HYPERTENSION
     Dosage: UNK
     Route: 048
     Dates: start: 20060101
  2. ACE INHIBITORS AND DIURETICS [Concomitant]

REACTIONS (5)
  - HYPOVOLAEMIA [None]
  - BILEVEL POSITIVE AIRWAY PRESSURE [None]
  - RENAL FAILURE ACUTE [None]
  - DIZZINESS [None]
  - KIDNEY INFECTION [None]
